FAERS Safety Report 20466694 (Version 2)
Quarter: 2022Q1

REPORT INFORMATION
  Report Type: Report from Study
  Country: US (occurrence: US)
  Receive Date: 20220213
  Receipt Date: 20220323
  Transmission Date: 20220423
  Serious: Yes (Death)
  Sender: FDA-Public Use
  Company Number: US-BAUSCH-BL-2022-004154

PATIENT
  Age: 58 Year
  Sex: Male

DRUGS (1)
  1. XIFAXAN [Suspect]
     Active Substance: RIFAXIMIN
     Indication: Product used for unknown indication
     Route: 048
     Dates: start: 202107, end: 20210906

REACTIONS (3)
  - Respiratory failure [Fatal]
  - Hypervolaemia [Fatal]
  - Hepatic failure [Fatal]

NARRATIVE: CASE EVENT DATE: 20211011
